FAERS Safety Report 7753341-4 (Version None)
Quarter: 2011Q3

REPORT INFORMATION
  Report Type: 
  Country: None (occurrence: None)
  Receive Date: 20110915
  Receipt Date: 20110912
  Transmission Date: 20111222
  Serious: Yes (Life-Threatening, Hospitalization, Disabling)
  Sender: FDA-Public Use
  Company Number: US-B.I. PHARMACEUTICALS,INC./RIDGEFIELD-2011-BP-19267BP

PATIENT
  Age: 78 Year
  Sex: Male
  Weight: 82.1 kg

DRUGS (6)
  1. METOPROLOL TARTRATE [Concomitant]
     Dosage: 100 MG
  2. ASPIRIN [Concomitant]
     Dosage: 81 MG
  3. PRADAXA [Suspect]
     Indication: ATRIAL FIBRILLATION
     Dates: start: 20070806
  4. LISINOPRIL [Concomitant]
     Dosage: 40 MG
  5. SIMVASTATIN [Concomitant]
     Dosage: 10 MG
     Dates: start: 20100526
  6. AMLODIPINE [Concomitant]
     Dosage: 5 MG

REACTIONS (1)
  - EMBOLIC STROKE [None]
